FAERS Safety Report 4707118-4 (Version None)
Quarter: 2005Q3

REPORT INFORMATION
  Report Type: 
  Country: None (occurrence: None)
  Receive Date: 20050706
  Receipt Date: 20031021
  Transmission Date: 20060218
  Serious: Yes (Hospitalization)
  Sender: FDA-Public Use
  Company Number: US-ROCHE-349667

PATIENT
  Age: 57 Year
  Sex: Male
  Weight: 72.6 kg

DRUGS (19)
  1. PEG-INTERFERON ALFA 2A (RO 25-8310) [Suspect]
     Route: 058
     Dates: start: 20011017
  2. PEG-INTERFERON ALFA 2A (RO 25-8310) [Suspect]
     Route: 058
     Dates: end: 20031010
  3. PEG-INTERFERON ALFA 2A (RO 25-8310) [Suspect]
     Route: 058
     Dates: end: 20040211
  4. PEG-INTERFERON ALFA 2A (RO 25-8310) [Suspect]
     Route: 058
     Dates: start: 20040315
  5. RIBAVIRIN [Suspect]
     Route: 048
     Dates: start: 20011017
  6. FELODIPINE [Concomitant]
     Indication: DRUG USE FOR UNKNOWN INDICATION
     Route: 065
  7. VICODIN [Concomitant]
     Indication: DRUG USE FOR UNKNOWN INDICATION
     Route: 065
  8. TRAZODONE [Concomitant]
     Indication: DRUG USE FOR UNKNOWN INDICATION
     Route: 065
  9. ZOLOFT [Concomitant]
     Indication: DRUG USE FOR UNKNOWN INDICATION
     Route: 065
  10. HYDROCODONE [Concomitant]
  11. CHOLESTYRAMINE [Concomitant]
  12. PLAVIX [Concomitant]
  13. PRAVACHOL [Concomitant]
  14. SPIRONOLACTONE [Concomitant]
  15. ASPIRIN [Concomitant]
  16. FISH OIL [Concomitant]
     Route: 049
  17. FOLIC ACID [Concomitant]
  18. NIACIN [Concomitant]
  19. OMEPRAZOLE [Concomitant]

REACTIONS (8)
  - CORONARY ARTERY OCCLUSION [None]
  - HAEMATOCRIT DECREASED [None]
  - HAEMOGLOBIN DECREASED [None]
  - INCISION SITE HAEMORRHAGE [None]
  - LOCALISED INFECTION [None]
  - OSTEOMYELITIS [None]
  - PROCEDURAL SITE REACTION [None]
  - SKIN ULCER [None]
